FAERS Safety Report 17446695 (Version 1)
Quarter: 2020Q1

REPORT INFORMATION
  Report Type: Spontaneous
  Country: US (occurrence: US)
  Receive Date: 20200221
  Receipt Date: 20200221
  Transmission Date: 20200409
  Serious: Yes (Death)
  Sender: FDA-Public Use
  Company Number: NVSC2020US047641

PATIENT
  Age: 32 Year
  Sex: Male

DRUGS (2)
  1. ALCOHOL. [Suspect]
     Active Substance: ALCOHOL
     Indication: INTENTIONAL SELF-INJURY
     Dosage: UNK
     Route: 065
  2. BUPROPION. [Suspect]
     Active Substance: BUPROPION
     Indication: INTENTIONAL SELF-INJURY
     Dosage: UNK, 2 HANDFULS OF 150 MG
     Route: 065

REACTIONS (7)
  - Completed suicide [Fatal]
  - Seizure [Fatal]
  - Toxicity to various agents [Fatal]
  - Mental status changes [Fatal]
  - Intentional overdose [Fatal]
  - Hypotension [Fatal]
  - Shock [Fatal]
